FAERS Safety Report 20470670 (Version 2)
Quarter: 2022Q1

REPORT INFORMATION
  Report Type: Report from Study
  Country: GB (occurrence: GB)
  Receive Date: 20220214
  Receipt Date: 20220322
  Transmission Date: 20220424
  Serious: Yes (Hospitalization, Other)
  Sender: FDA-Public Use
  Company Number: GB-TAKEDA-2021TUS076631

PATIENT
  Sex: Male

DRUGS (2)
  1. IXAZOMIB [Suspect]
     Active Substance: IXAZOMIB
     Indication: Plasma cell myeloma
     Dosage: UNK
     Route: 048
     Dates: start: 20211011, end: 20220209
  2. COVID-19 VACCINE NOS [Suspect]
     Active Substance: COVID-19 VACCINE NOS
     Indication: COVID-19
     Dosage: UNK
     Route: 065

REACTIONS (15)
  - Scrotal infection [Unknown]
  - Fall [Recovered/Resolved]
  - Muscle spasms [Unknown]
  - Bowel movement irregularity [Unknown]
  - Muscular weakness [Unknown]
  - Burning sensation [Unknown]
  - Weight decreased [Unknown]
  - Decreased appetite [Unknown]
  - Scrotal erythema [Unknown]
  - Gait disturbance [Unknown]
  - Loss of personal independence in daily activities [Unknown]
  - Malaise [Unknown]
  - COVID-19 immunisation [Unknown]
  - C-reactive protein abnormal [Unknown]
  - Constipation [Unknown]

NARRATIVE: CASE EVENT DATE: 20220124
